FAERS Safety Report 6068682-9 (Version None)
Quarter: 2009Q1

REPORT INFORMATION
  Report Type: 
  Country: None (occurrence: None)
  Receive Date: 20090206
  Receipt Date: 20090127
  Transmission Date: 20090719
  Serious: Yes (Other)
  Sender: FDA-Public Use
  Company Number: B0551211A

PATIENT
  Age: 53 Year
  Sex: Female

DRUGS (2)
  1. TYVERB [Suspect]
     Dosage: 1250MG PER DAY
     Route: 048
     Dates: start: 20081022, end: 20081127
  2. XELODA [Suspect]
     Dosage: 2000MGM2 PER DAY
     Route: 048
     Dates: start: 20081022, end: 20081125

REACTIONS (3)
  - BLOOD BILIRUBIN INCREASED [None]
  - HEPATOCELLULAR INJURY [None]
  - JAUNDICE [None]
